FAERS Safety Report 15563233 (Version 1)
Quarter: 2018Q4

REPORT INFORMATION
  Report Type: Spontaneous
  Country: GB (occurrence: PT)
  Receive Date: 20181029
  Receipt Date: 20181029
  Transmission Date: 20190205
  Serious: Yes (Hospitalization, Other)
  Sender: FDA-Public Use
  Company Number: PT-FRESENIUS KABI-FK201811069

PATIENT
  Age: 38 Year
  Sex: Male
  Weight: 93 kg

DRUGS (6)
  1. NO DRUG NAME [Suspect]
     Active Substance: UNSPECIFIED INGREDIENT
     Indication: ACUTE GRAFT VERSUS HOST DISEASE
     Dosage: 200 MG, QD
     Route: 048
     Dates: start: 20180424, end: 20180606
  2. PREDNISONE. [Suspect]
     Active Substance: PREDNISONE
     Indication: ACUTE GRAFT VERSUS HOST DISEASE
     Dosage: 80 MG, TID
     Route: 048
     Dates: start: 20180425, end: 20180508
  3. METHYLPREDNISOLONE. [Suspect]
     Active Substance: METHYLPREDNISOLONE
     Indication: ACUTE GRAFT VERSUS HOST DISEASE
     Dosage: 100 MG, BID
     Route: 042
     Dates: start: 20180424, end: 20180424
  4. ACYCLOVIR SODIUM (MANUFACTURER UNKNOWN) [Suspect]
     Active Substance: ACYCLOVIR SODIUM
     Indication: PRODUCT USED FOR UNKNOWN INDICATION
     Dosage: 400 MG, UNK
     Route: 065
     Dates: start: 20180322
  5. CICLOSPORIN [Suspect]
     Active Substance: CYCLOSPORINE
     Indication: PRODUCT USED FOR UNKNOWN INDICATION
     Dosage: 170 MG, UNK
     Route: 065
     Dates: start: 20180403
  6. PREDNISONE. [Suspect]
     Active Substance: PREDNISONE
     Dosage: 40 MG, TID
     Route: 048
     Dates: start: 20180509

REACTIONS (1)
  - Cytomegalovirus infection [Recovered/Resolved]

NARRATIVE: CASE EVENT DATE: 20180529
